FAERS Safety Report 26155656 (Version 1)
Quarter: 2025Q4

REPORT INFORMATION
  Report Type: Report from Study
  Country: US (occurrence: US)
  Receive Date: 20251215
  Receipt Date: 20251215
  Transmission Date: 20260118
  Serious: Yes (Hospitalization, Other)
  Sender: GILEAD
  Company Number: US-GILEAD-2025-0740387

PATIENT
  Age: 50 Year
  Sex: Female

DRUGS (1)
  1. SELADELPAR [Suspect]
     Active Substance: SELADELPAR
     Indication: Product used for unknown indication
     Dosage: 10MG PO DAILY
     Route: 048

REACTIONS (3)
  - Ocular icterus [Unknown]
  - Myocardial infarction [Unknown]
  - Haemoglobin decreased [Unknown]
